FAERS Safety Report 9178349 (Version 1)
Quarter: 2013Q1

REPORT INFORMATION
  Report Type: Spontaneous
  Country: IT (occurrence: IT)
  Receive Date: 20130321
  Receipt Date: 20130321
  Transmission Date: 20140127
  Serious: Yes (Hospitalization, Other)
  Sender: FDA-Public Use
  Company Number: IT-BRISTOL-MYERS SQUIBB COMPANY-17472432

PATIENT
  Age: 76 Year
  Sex: Female

DRUGS (1)
  1. COUMADIN TABS 5 MG [Suspect]
     Indication: ATRIAL FIBRILLATION
     Dosage: DOSAGE: 1 UNIT
     Route: 048
     Dates: start: 20130101, end: 20130216

REACTIONS (4)
  - Intra-abdominal haematoma [Recovered/Resolved]
  - Abdominal wall haematoma [Recovered/Resolved]
  - Anaemia [Unknown]
  - Fall [Unknown]
